FAERS Safety Report 24013676 (Version 1)
Quarter: 2024Q2

REPORT INFORMATION
  Report Type: Spontaneous
  Country: JP (occurrence: JP)
  Receive Date: 20240626
  Receipt Date: 20240626
  Transmission Date: 20240716
  Serious: Yes (Other)
  Sender: FDA-Public Use
  Company Number: JP-Accord-431630

PATIENT
  Age: 71 Year
  Sex: Female

DRUGS (2)
  1. METHOTREXATE [Suspect]
     Active Substance: METHOTREXATE
     Indication: Rheumatoid arthritis
  2. TOFACITINIB [Suspect]
     Active Substance: TOFACITINIB
     Indication: Rheumatoid arthritis

REACTIONS (3)
  - Epstein-Barr virus associated lymphoproliferative disorder [Recovered/Resolved]
  - Immunodeficiency [Recovered/Resolved]
  - Lymphoproliferative disorder [Recovered/Resolved]
